FAERS Safety Report 21837789 (Version 1)
Quarter: 2023Q1

REPORT INFORMATION
  Report Type: Spontaneous
  Country: US (occurrence: US)
  Receive Date: 20230109
  Receipt Date: 20230109
  Transmission Date: 20230417
  Serious: No
  Sender: FDA-Public Use
  Company Number: US-BRISTOL-MYERS SQUIBB COMPANY-2023-003177

PATIENT
  Age: 74 Year
  Sex: Female
  Weight: 40.82 kg

DRUGS (1)
  1. REVLIMID [Suspect]
     Active Substance: LENALIDOMIDE
     Indication: Plasma cell myeloma
     Route: 048
     Dates: start: 20200201

REACTIONS (3)
  - Nasopharyngitis [Recovering/Resolving]
  - Bronchitis [Recovering/Resolving]
  - Respiratory tract infection [Recovering/Resolving]
